FAERS Safety Report 7757825-4 (Version None)
Quarter: 2011Q3

REPORT INFORMATION
  Report Type: 
  Country: None (occurrence: None)
  Receive Date: 20110918
  Receipt Date: 20110729
  Transmission Date: 20111222
  Serious: Yes (Other)
  Sender: FDA-Public Use
  Company Number: PHHY2011BR68981

PATIENT
  Age: 66 Year
  Sex: Female

DRUGS (5)
  1. DIOVAN [Suspect]
     Dosage: 160 MG (1 TABLET DAILY)
     Dates: start: 20110701
  2. CRESTOR [Concomitant]
     Indication: CARDIAC DISORDER
     Dosage: 5 MG, UNK
  3. DIOVAN HCT [Suspect]
     Indication: HYPERTENSION
     Dosage: 1 DF(160/25MG) DAILY
     Dates: end: 20090101
  4. DIOVAN [Suspect]
     Indication: HYPERTENSION
     Dosage: 80 MG (1 TABLET DAILY)
     Dates: start: 20090101
  5. CARVEDILOL [Concomitant]
     Dosage: 25 MG (2 TABLETS DAILY)

REACTIONS (8)
  - METASTASES TO LIVER [None]
  - BREAST CANCER [None]
  - METASTASES TO SPINE [None]
  - BLOOD PRESSURE FLUCTUATION [None]
  - METASTASES TO BONE [None]
  - BONE PAIN [None]
  - FATIGUE [None]
  - BONE NEOPLASM MALIGNANT [None]
